FAERS Safety Report 10576934 (Version 2)
Quarter: 2014Q4

REPORT INFORMATION
  Report Type: Report from Study
  Country: MX (occurrence: MX)
  Receive Date: 20141111
  Receipt Date: 20141111
  Transmission Date: 20150529
  Serious: Yes (Death, Other)
  Sender: FDA-Public Use
  Company Number: PHHY2014MX129439

PATIENT
  Age: 79 Year
  Sex: Female

DRUGS (9)
  1. SPIRIVA [Concomitant]
     Active Substance: TIOTROPIUM BROMIDE MONOHYDRATE
     Indication: CHRONIC OBSTRUCTIVE PULMONARY DISEASE
     Dosage: 1 DF, DAILY
     Route: 065
     Dates: start: 2010
  2. ACLASTA [Suspect]
     Active Substance: ZOLEDRONIC ACID
     Dosage: 1 DF, ANNUALLY
     Route: 042
     Dates: start: 2014
  3. LYRICA [Concomitant]
     Active Substance: PREGABALIN
     Indication: OSTEOPOROSIS
     Dosage: 1 DF, DAILY
     Route: 065
     Dates: start: 2012
  4. TRAMCET [Concomitant]
     Active Substance: ACETAMINOPHEN\TRAMADOL
     Indication: OSTEOPOROSIS
     Dosage: 2 DF, DAILY
     Route: 065
     Dates: start: 2012
  5. ACLASTA [Suspect]
     Active Substance: ZOLEDRONIC ACID
     Indication: OSTEOPOROSIS
     Dosage: 1 DF, ANNUALLY
     Route: 042
     Dates: start: 2012
  6. RANTUDIL [Concomitant]
     Active Substance: ACEMETACIN
     Indication: OSTEOPOROSIS
     Dosage: 1 DF, DAILY
     Route: 065
     Dates: start: 2012
  7. COMBIVENT [Concomitant]
     Active Substance: ALBUTEROL SULFATE\IPRATROPIUM BROMIDE
     Indication: CHRONIC OBSTRUCTIVE PULMONARY DISEASE
     Dosage: 2 DF, UNK
     Route: 065
     Dates: start: 2010
  8. SALBUTAMOL [Concomitant]
     Active Substance: ALBUTEROL
     Indication: CHRONIC OBSTRUCTIVE PULMONARY DISEASE
     Dosage: PRN (EVERY TIME SHE HAD AN ATTACK)
     Route: 065
     Dates: start: 1994
  9. MICARDIS [Concomitant]
     Active Substance: TELMISARTAN
     Indication: CARDIAC DISORDER
     Dosage: 1 DF, UNK
     Route: 065
     Dates: start: 1999

REACTIONS (13)
  - Confusional state [Fatal]
  - Lung disorder [Fatal]
  - Infection [Unknown]
  - Cardiac disorder [Fatal]
  - Renal failure [Fatal]
  - Angina unstable [Unknown]
  - Cognitive disorder [Fatal]
  - Urine output decreased [Fatal]
  - Dehydration [Unknown]
  - Gastrointestinal disorder [Not Recovered/Not Resolved]
  - Encephalopathy [Fatal]
  - Cerebrovascular accident [Fatal]
  - Micturition urgency [Unknown]

NARRATIVE: CASE EVENT DATE: 20140515
